FAERS Safety Report 22811952 (Version 3)
Quarter: 2023Q4

REPORT INFORMATION
  Report Type: Report from Study
  Country: US (occurrence: US)
  Receive Date: 20230811
  Receipt Date: 20231212
  Transmission Date: 20240110
  Serious: Yes (Other)
  Sender: FDA-Public Use
  Company Number: US-ACADIA PHARMACEUTICALS INC.-ACA-2023-TRF-003040

PATIENT
  Sex: Female

DRUGS (2)
  1. DAYBUE [Suspect]
     Active Substance: TROFINETIDE
     Indication: Rett syndrome
     Dosage: 60 MILLILITER, BID VIA G TUBE
  2. DAYBUE [Suspect]
     Active Substance: TROFINETIDE
     Dosage: STARTED ON A LOW DOSE VIA G TUBE

REACTIONS (9)
  - Choking [Unknown]
  - Underdose [Not Recovered/Not Resolved]
  - Dehydration [Not Recovered/Not Resolved]
  - Retching [Unknown]
  - Erythema [Unknown]
  - Product dose omission issue [Unknown]
  - Diarrhoea [Not Recovered/Not Resolved]
  - Diarrhoea [Not Recovered/Not Resolved]
  - Diarrhoea [Unknown]
